FAERS Safety Report 5852164-0 (Version None)
Quarter: 2008Q3

REPORT INFORMATION
  Report Type: 
  Country: None (occurrence: None)
  Receive Date: 20080821
  Receipt Date: 20080814
  Transmission Date: 20090109
  Serious: Yes (Other)
  Sender: FDA-Public Use
  Company Number: FR-SP-E2008-06767

PATIENT

DRUGS (2)
  1. MONOVAX [Suspect]
     Indication: IMMUNISATION
     Route: 065
  2. TUBERSOL [Suspect]
     Indication: TUBERCULIN TEST
     Dosage: 0.1 ML
     Route: 065

REACTIONS (2)
  - TUBERCULIN TEST POSITIVE [None]
  - TUBERCULOSIS [None]
